FAERS Safety Report 24285309 (Version 1)
Quarter: 2024Q3

REPORT INFORMATION
  Report Type: Spontaneous
  Country: CA (occurrence: CA)
  Receive Date: 20240905
  Receipt Date: 20240905
  Transmission Date: 20241016
  Serious: Yes (Hospitalization)
  Sender: AUROBINDO
  Company Number: CA-AUROBINDO-AUR-APL-2024-043427

PATIENT
  Age: 83 Year
  Sex: Male
  Weight: 100 kg

DRUGS (1)
  1. RISEDRONATE SODIUM [Suspect]
     Active Substance: RISEDRONATE SODIUM
     Indication: Osteoporosis
     Dosage: 35 MILLIGRAM, EVERY WEEK (1 EVERY 1 WEEKS)
     Route: 048

REACTIONS (3)
  - Asthenia [Recovering/Resolving]
  - Muscular weakness [Recovering/Resolving]
  - Loss of personal independence in daily activities [Recovering/Resolving]
